FAERS Safety Report 13416737 (Version 1)
Quarter: 2017Q2

REPORT INFORMATION
  Report Type: Spontaneous
  Country: US (occurrence: US)
  Receive Date: 20170406
  Receipt Date: 20170406
  Transmission Date: 20170830
  Serious: No
  Sender: FDA-Public Use
  Company Number: US-TEVA-754931ACC

PATIENT
  Age: 20 Year
  Sex: Female
  Weight: 93.98 kg

DRUGS (1)
  1. PARAGARD T 380A [Suspect]
     Active Substance: COPPER
     Indication: CONTRACEPTION
     Dates: start: 20170207, end: 20170227

REACTIONS (1)
  - Therapy cessation [Recovered/Resolved]

NARRATIVE: CASE EVENT DATE: 20170227
